FAERS Safety Report 9748313 (Version 1)
Quarter: 2013Q4

REPORT INFORMATION
  Report Type: Spontaneous
  Country: US (occurrence: US)
  Receive Date: 20131212
  Receipt Date: 20131212
  Transmission Date: 20140711
  Serious: Yes (Other)
  Sender: FDA-Public Use
  Company Number: US-JNJFOC-20131201378

PATIENT
  Sex: Male

DRUGS (5)
  1. DOXORUBICIN HYDROCHLORIDE [Suspect]
     Indication: PROSTATE CANCER METASTATIC
     Dosage: ON DAYS 1, 15, AND 29
     Route: 042
  2. KETOCONAZOLE [Suspect]
     Indication: PROSTATE CANCER METASTATIC
     Dosage: 7 DAYS/ WEEK IN WEEKS 1, 3, AND 5
     Route: 048
  3. VINBLASTINE [Suspect]
     Indication: PROSTATE CANCER METASTATIC
     Dosage: ON DAYS 8, 22, AND 35
     Route: 042
  4. ESTRAMUSTINE [Suspect]
     Indication: PROSTATE CANCER METASTATIC
     Dosage: 7 DAYS/ WEEK IN WEEKS 2, 4, AND 6
     Route: 048
  5. HYDROCORTISONE [Suspect]
     Indication: PROSTATE CANCER METASTATIC
     Dosage: 20MG EVERY MORNING AND 10 MG EVERY EVENING
     Route: 048

REACTIONS (24)
  - Syncope [Unknown]
  - Ischaemia [Unknown]
  - Stomatitis [Unknown]
  - Neutropenia [Unknown]
  - Ureteric obstruction [Unknown]
  - Myocardial infarction [Unknown]
  - Bone pain [Unknown]
  - Embolism [Unknown]
  - Abdominal pain [Unknown]
  - Device related infection [Unknown]
  - Thrombosis in device [Unknown]
  - Chest pain [Unknown]
  - Embolism [Unknown]
  - Supraventricular tachycardia [Unknown]
  - Sinus bradycardia [Unknown]
  - Pneumonitis [Unknown]
  - Odynophagia [Unknown]
  - Febrile neutropenia [Unknown]
  - Depression [Unknown]
  - Fatigue [Unknown]
  - Infection [Unknown]
  - Left ventricular dysfunction [Unknown]
  - Neuropathy peripheral [Unknown]
  - Off label use [Unknown]
